FAERS Safety Report 5501753-1 (Version None)
Quarter: 2007Q4

REPORT INFORMATION
  Report Type: 
  Country: None (occurrence: None)
  Receive Date: 20071018
  Receipt Date: 20070410
  Transmission Date: 20080405
  Serious: Yes (Other)
  Sender: FDA-Public Use
  Company Number: 2007030186

PATIENT
  Sex: Male

DRUGS (1)
  1. NEURONTIN [Suspect]
     Indication: BIPOLAR DISORDER
     Dosage: 300 MG (0 MG, 1 IN 1 D)
     Dates: start: 19980301

REACTIONS (8)
  - CONFUSIONAL STATE [None]
  - DRUG INEFFECTIVE [None]
  - FATIGUE [None]
  - LETHARGY [None]
  - MEMORY IMPAIRMENT [None]
  - PALPITATIONS [None]
  - SOCIAL AVOIDANT BEHAVIOUR [None]
  - THINKING ABNORMAL [None]
